FAERS Safety Report 9695816 (Version 1)
Quarter: 2013Q4

REPORT INFORMATION
  Report Type: Spontaneous
  Country: US (occurrence: US)
  Receive Date: 20131119
  Receipt Date: 20131119
  Transmission Date: 20140711
  Serious: Yes (Other)
  Sender: FDA-Public Use
  Company Number: US-PFIZER INC-2013327637

PATIENT
  Age: 16 Year
  Sex: Male
  Weight: 38.55 kg

DRUGS (1)
  1. VIAGRA [Suspect]
     Indication: PULMONARY HYPERTENSION
     Dosage: 25 MG, 3X/DAY

REACTIONS (2)
  - Cardiac disorder [Unknown]
  - Off label use [Unknown]
